FAERS Safety Report 14267089 (Version 3)
Quarter: 2018Q4

REPORT INFORMATION
  Report Type: Spontaneous
  Country: US (occurrence: US)
  Receive Date: 20171211
  Receipt Date: 20181112
  Transmission Date: 20190204
  Serious: No
  Sender: FDA-Public Use
  Company Number: US-PFIZER INC-2017522932

PATIENT
  Age: 72 Year
  Sex: Female
  Weight: 77.98 kg

DRUGS (36)
  1. BENAZEPRIL [Suspect]
     Active Substance: BENAZEPRIL HYDROCHLORIDE
     Dosage: UNK
  2. CUBICIN [Suspect]
     Active Substance: DAPTOMYCIN
     Dosage: UNK
  3. CELEBREX [Suspect]
     Active Substance: CELECOXIB
     Dosage: UNK
  4. LIPITOR [Suspect]
     Active Substance: ATORVASTATIN CALCIUM
     Dosage: UNK
  5. CLONIDINE. [Suspect]
     Active Substance: CLONIDINE
     Dosage: UNK
  6. CITALOPRAM [Suspect]
     Active Substance: CITALOPRAM HYDROBROMIDE
     Dosage: UNK
  7. COZAAR [Suspect]
     Active Substance: LOSARTAN POTASSIUM
     Dosage: UNK
  8. DIOVAN [Suspect]
     Active Substance: VALSARTAN
     Dosage: UNK
  9. SINGULAIR [Suspect]
     Active Substance: MONTELUKAST SODIUM
     Dosage: UNK
  10. ZOCOR [Suspect]
     Active Substance: SIMVASTATIN
     Dosage: UNK
  11. CODEINE [Suspect]
     Active Substance: CODEINE
     Dosage: UNK
  12. BLEPH-10 [Suspect]
     Active Substance: SULFACETAMIDE SODIUM
     Dosage: UNK
  13. ULTRAM [Suspect]
     Active Substance: TRAMADOL HYDROCHLORIDE
  14. DECONGESTANT [Suspect]
     Active Substance: UNSPECIFIED INGREDIENT
     Dosage: UNK
  15. AMOXICILLIN. [Suspect]
     Active Substance: AMOXICILLIN
     Dosage: UNK
  16. ATENOLOL. [Suspect]
     Active Substance: ATENOLOL
     Dosage: UNK
  17. NIASPAN [Suspect]
     Active Substance: NIACIN
     Dosage: UNK
  18. SPIRONOLACTONE. [Suspect]
     Active Substance: SPIRONOLACTONE
     Dosage: UNK
  19. CARDIZEM [Suspect]
     Active Substance: DILTIAZEM HYDROCHLORIDE
     Dosage: UNK
  20. LISINOPRIL. [Suspect]
     Active Substance: LISINOPRIL
     Dosage: UNK
  21. SALSALATE. [Suspect]
     Active Substance: SALSALATE
     Dosage: UNK
  22. CEFTRIAXONE SODIUM. [Suspect]
     Active Substance: CEFTRIAXONE SODIUM
     Dosage: UNK
  23. VANCOMYCIN HCL [Suspect]
     Active Substance: VANCOMYCIN HYDROCHLORIDE
     Dosage: UNK
  24. ENABLEX [Suspect]
     Active Substance: DARIFENACIN HYDROBROMIDE
     Dosage: UNK
  25. ENALAPRIL [Suspect]
     Active Substance: ENALAPRIL
     Dosage: UNK
  26. ZETIA [Suspect]
     Active Substance: EZETIMIBE
     Dosage: UNK
  27. NORVASC [Suspect]
     Active Substance: AMLODIPINE BESYLATE
     Dosage: UNK
  28. BENICAR [Suspect]
     Active Substance: OLMESARTAN MEDOXOMIL
     Dosage: UNK
  29. CHLORAL HYDRATE [Suspect]
     Active Substance: CHLORAL HYDRATE
     Dosage: UNK
  30. SODIUM SULAMYD [Suspect]
     Active Substance: SULFACETAMIDE SODIUM
     Dosage: UNK
  31. AMLODIPINE BESILATE [Suspect]
     Active Substance: AMLODIPINE BESYLATE
     Dosage: UNK
  32. CARTIA XT [Suspect]
     Active Substance: DILTIAZEM HYDROCHLORIDE
     Dosage: UNK
  33. HYDRALAZINE [Suspect]
     Active Substance: HYDRALAZINE HYDROCHLORIDE
     Dosage: UNK
  34. LASIX [Suspect]
     Active Substance: FUROSEMIDE
     Dosage: UNK
  35. TEKTURNA [Suspect]
     Active Substance: ALISKIREN HEMIFUMARATE
     Dosage: UNK
  36. TERBINAFINE. [Suspect]
     Active Substance: TERBINAFINE
     Dosage: UNK

REACTIONS (1)
  - Drug hypersensitivity [Unknown]
